FAERS Safety Report 20871940 (Version 1)
Quarter: 2022Q2

REPORT INFORMATION
  Report Type: Spontaneous
  Country: US (occurrence: None)
  Receive Date: 20220524
  Receipt Date: 20220524
  Transmission Date: 20220721
  Serious: Yes (Hospitalization, Disabling, Other)
  Sender: FDA-Public Use
  Company Number: None

PATIENT
  Age: 32 Year
  Sex: Female
  Weight: 87.75 kg

DRUGS (10)
  1. BUPRENORPHINE\NALOXONE [Suspect]
     Active Substance: BUPRENORPHINE\NALOXONE
     Indication: Drug use disorder
     Dosage: OTHER QUANTITY : 0.5 TABLET(S);?FREQUENCY : TWICE A DAY;?
     Route: 060
     Dates: start: 20170616
  2. BUPRENORPHINE\NALOXONE [Concomitant]
     Active Substance: BUPRENORPHINE\NALOXONE
  3. PANTOPRAZOLE [Concomitant]
  4. VORTIOXETINE [Concomitant]
  5. BUPROPION [Concomitant]
     Active Substance: BUPROPION
  6. Ceterizine Diclofenac [Concomitant]
  7. Iron supplement [Concomitant]
  8. VITAMIN D NOS [Concomitant]
     Active Substance: VITAMIN D NOS
  9. NEXPLANON [Concomitant]
     Active Substance: ETONOGESTREL
  10. MELATONIN [Concomitant]
     Active Substance: MELATONIN

REACTIONS (9)
  - Tooth fracture [None]
  - Dental caries [None]
  - Abscess [None]
  - Toothache [None]
  - Swelling face [None]
  - Eating disorder [None]
  - Self esteem decreased [None]
  - Job dissatisfaction [None]
  - Social problem [None]

NARRATIVE: CASE EVENT DATE: 20170915
